FAERS Safety Report 6333811-6 (Version None)
Quarter: 2009Q3

REPORT INFORMATION
  Report Type: 
  Country: None (occurrence: None)
  Receive Date: 20090829
  Receipt Date: 20090610
  Transmission Date: 20100115
  Serious: No
  Sender: FDA-Public Use
  Company Number: US-ABBOTT-09P-163-0579183-00

PATIENT
  Sex: Female

DRUGS (6)
  1. SIMCOR [Suspect]
     Indication: HYPERCHOLESTEROLAEMIA
     Dosage: 500/20 MG QHS
     Route: 048
     Dates: start: 20090601
  2. POTASSIUM CHLORIDE [Concomitant]
     Indication: DRUG USE FOR UNKNOWN INDICATION
     Route: 048
  3. AVANDIA [Concomitant]
     Indication: DRUG USE FOR UNKNOWN INDICATION
  4. ATENOLOL [Concomitant]
     Indication: DRUG USE FOR UNKNOWN INDICATION
  5. ASPIRIN [Concomitant]
     Indication: DRUG USE FOR UNKNOWN INDICATION
     Route: 048
  6. HYDROCHLORTHIAZID [Concomitant]
     Indication: DRUG USE FOR UNKNOWN INDICATION
     Route: 048

REACTIONS (3)
  - FLUSHING [None]
  - INSOMNIA [None]
  - SKIN WARM [None]
